FAERS Safety Report 5268052-7 (Version None)
Quarter: 2007Q1

REPORT INFORMATION
  Report Type: 
  Country: None (occurrence: None)
  Receive Date: 20070315
  Receipt Date: 20070315
  Transmission Date: 20070707
  Serious: Yes (Other)
  Sender: FDA-Public Use
  Company Number: None

PATIENT

DRUGS (1)
  1. QUALIQUIN 324 MG QUALITEST [Suspect]
     Indication: MUSCLE SPASMS
     Dosage: 324 MG PO
     Route: 048

REACTIONS (1)
  - MEDICATION ERROR [None]
